FAERS Safety Report 8302204-4 (Version None)
Quarter: 2012Q2

REPORT INFORMATION
  Report Type: 
  Country: None (occurrence: None)
  Receive Date: 20120420
  Receipt Date: 20120418
  Transmission Date: 20120825
  Serious: Yes (Other)
  Sender: FDA-Public Use
  Company Number: US-BAYER-2012-038509

PATIENT

DRUGS (1)
  1. ULTRAVIST 150 [Suspect]
     Indication: COMPUTERISED TOMOGRAM
     Dosage: 120 MG, ONCE

REACTIONS (4)
  - NASAL CONGESTION [None]
  - PHARYNGEAL OEDEMA [None]
  - DYSPNOEA [None]
  - ERYTHEMA [None]
